FAERS Safety Report 20154155 (Version 6)
Quarter: 2024Q3

REPORT INFORMATION
  Report Type: Report from Study
  Country: US (occurrence: US)
  Receive Date: 20211207
  Receipt Date: 20240830
  Transmission Date: 20241016
  Serious: Yes (Other)
  Sender: ABBVIE
  Company Number: US-ABBVIE-21K-163-4187327-00

PATIENT
  Sex: Male

DRUGS (3)
  1. HUMIRA [Suspect]
     Active Substance: ADALIMUMAB
     Indication: Crohn^s disease
     Route: 058
     Dates: start: 20191025
  2. HUMIRA [Suspect]
     Active Substance: ADALIMUMAB
     Route: 058
  3. MODERNA COVID-19 VACCINE [Concomitant]
     Active Substance: ELASOMERAN
     Indication: COVID-19 immunisation
     Dosage: ONCE
     Route: 030

REACTIONS (12)
  - Systemic lupus erythematosus [Unknown]
  - Injection site reaction [Recovered/Resolved]
  - Aortic stenosis [Not Recovered/Not Resolved]
  - Nerve injury [Unknown]
  - Weight decreased [Unknown]
  - Irritability [Unknown]
  - Injection site inflammation [Unknown]
  - Emotional disorder [Recovering/Resolving]
  - Injection site papule [Unknown]
  - Discomfort [Unknown]
  - Injection site pain [Unknown]
  - Injection site reaction [Unknown]
